FAERS Safety Report 25835838 (Version 1)
Quarter: 2025Q3

REPORT INFORMATION
  Report Type: Spontaneous
  Country: EU (occurrence: EU)
  Receive Date: 20250923
  Receipt Date: 20250923
  Transmission Date: 20251020
  Serious: Yes (Other)
  Sender: BAYER HEALTHCARE PHARMACEUTICALS INC.
  Company Number: EU-BAYER-2025A123933

PATIENT
  Age: 62 Year
  Sex: Male
  Weight: 110 kg

DRUGS (12)
  1. KERENDIA [Suspect]
     Active Substance: FINERENONE
     Indication: Type 2 diabetes mellitus
  2. KERENDIA [Suspect]
     Active Substance: FINERENONE
     Indication: Chronic kidney disease
  3. DAPAGLIFLOZIN [Concomitant]
     Active Substance: DAPAGLIFLOZIN
  4. METFORMIN [Concomitant]
     Active Substance: METFORMIN HYDROCHLORIDE
  5. DULAGLUTIDE [Concomitant]
     Active Substance: DULAGLUTIDE
  6. TELMISARTAN [Concomitant]
     Active Substance: TELMISARTAN
  7. NEBIVOLOL [Concomitant]
     Active Substance: NEBIVOLOL
  8. MOXONIDINE [Concomitant]
     Active Substance: MOXONIDINE
  9. ROSUVASTATIN [Concomitant]
     Active Substance: ROSUVASTATIN
  10. EZETIMIBE [Concomitant]
     Active Substance: EZETIMIBE
  11. VITAMIN D [Concomitant]
     Active Substance: VITAMIN D NOS
  12. PANTOPRAZOLE [Concomitant]
     Active Substance: PANTOPRAZOLE

REACTIONS (3)
  - Glomerular filtration rate decreased [None]
  - Urine albumin/creatinine ratio increased [None]
  - Blood potassium increased [None]
